FAERS Safety Report 4867233-1 (Version None)
Quarter: 2005Q4

REPORT INFORMATION
  Report Type: 
  Country: None (occurrence: None)
  Receive Date: 20051222
  Receipt Date: 20051213
  Transmission Date: 20060501
  Serious: Yes (Life-Threatening, Hospitalization, Other)
  Sender: FDA-Public Use
  Company Number: 2005157348

PATIENT
  Age: 18 Year
  Sex: Male

DRUGS (3)
  1. GEODON [Suspect]
     Indication: ILL-DEFINED DISORDER
     Dosage: 20 MG, INTRAMUSCULAR
     Route: 030
  2. SODIUM BICARBONATE IN PLASTIC CONTAINER [Suspect]
     Indication: ILL-DEFINED DISORDER
  3. HALOPERIDOL [Suspect]
     Indication: ILL-DEFINED DISORDER
     Dosage: 10 MG, INTRTAMUSCULAR
     Route: 030

REACTIONS (15)
  - AGITATION [None]
  - BLOOD CREATINE PHOSPHOKINASE INCREASED [None]
  - BODY TEMPERATURE INCREASED [None]
  - CORNEAL REFLEX DECREASED [None]
  - DELIRIUM [None]
  - HYPERHIDROSIS [None]
  - HYPERTONIA [None]
  - METABOLIC ALKALOSIS [None]
  - MYOCLONUS [None]
  - NEUROLEPTIC MALIGNANT SYNDROME [None]
  - RETCHING [None]
  - SINUS TACHYCARDIA [None]
  - TACHYCARDIA [None]
  - TACHYPNOEA [None]
  - WHITE BLOOD CELL COUNT INCREASED [None]
